FAERS Safety Report 7666937-5 (Version None)
Quarter: 2011Q3

REPORT INFORMATION
  Report Type: 
  Country: None (occurrence: None)
  Receive Date: 20110806
  Receipt Date: 20110427
  Transmission Date: 20111222
  Serious: No
  Sender: FDA-Public Use
  Company Number: US-ABBOTT-11P-163-0708438-00

PATIENT
  Sex: Male
  Weight: 77.18 kg

DRUGS (4)
  1. VITAMIN TAB [Concomitant]
     Indication: PRODUCT USED FOR UNKNOWN INDICATION
  2. NIASPAN [Suspect]
     Indication: BLOOD CHOLESTEROL ABNORMAL
     Dates: start: 20110201, end: 20110426
  3. ASPIRIN [Concomitant]
     Indication: PRODUCT USED FOR UNKNOWN INDICATION
  4. NIASPAN [Suspect]
     Indication: LABORATORY TEST

REACTIONS (7)
  - HAEMORRHAGE [None]
  - BLOOD IRON DECREASED [None]
  - PARAESTHESIA [None]
  - HAEMOGLOBIN DECREASED [None]
  - ABDOMINAL DISCOMFORT [None]
  - FLUSHING [None]
  - RED BLOOD CELL COUNT DECREASED [None]
